FAERS Safety Report 7470242-X (Version None)
Quarter: 2011Q2

REPORT INFORMATION
  Report Type: 
  Country: None (occurrence: None)
  Receive Date: 20110510
  Receipt Date: 20110503
  Transmission Date: 20111010
  Serious: Yes (Other)
  Sender: FDA-Public Use
  Company Number: PHHY2011GB37063

PATIENT
  Age: 89 Year
  Sex: Male

DRUGS (9)
  1. ALFACALCIDOL [Concomitant]
     Dosage: 250 NG, TID
  2. VENTAVIS [Interacting]
     Indication: PERIPHERAL ISCHAEMIA
     Dosage: 50 UG, QD
     Route: 042
  3. WARFARIN SODIUM [Suspect]
     Dosage: 3 MG, UNK
  4. CODEINE PHOSPHATE [Concomitant]
     Indication: ANALGESIC THERAPY
     Dosage: 60 MG, UNK
  5. CALCIUM [Concomitant]
     Dosage: 1 DF, UNK
  6. ACETAMINOPHEN [Interacting]
     Indication: ANALGESIC THERAPY
     Dosage: 1 G, UNK
  7. FUROSEMIDE [Concomitant]
     Dosage: 40 MG, QD
  8. TIMOLOL [Concomitant]
     Route: 047
  9. ERGOCALCIFEROL [Concomitant]
     Dosage: 1 DF, UNK

REACTIONS (2)
  - INTERNATIONAL NORMALISED RATIO INCREASED [None]
  - DRUG INTERACTION [None]
